FAERS Safety Report 4458983-X (Version None)
Quarter: 2004Q3

REPORT INFORMATION
  Report Type: 
  Country: None (occurrence: None)
  Receive Date: 20040922
  Receipt Date: 20040922
  Transmission Date: 20050211
  Serious: Yes (Hospitalization)
  Sender: FDA-Public Use
  Company Number: None

PATIENT
  Age: 87 Year
  Sex: Female

DRUGS (1)
  1. WARFARIN SODIUM [Suspect]
     Indication: CEREBROVASCULAR ACCIDENT

REACTIONS (7)
  - ASTHENIA [None]
  - DRUG TOXICITY [None]
  - HERPES VIRUS INFECTION [None]
  - INTERNATIONAL NORMALISED RATIO INCREASED [None]
  - PHARYNGEAL ERYTHEMA [None]
  - RECTAL HAEMORRHAGE [None]
  - STOMATITIS [None]
